FAERS Safety Report 7923137 (Version 3)
Quarter: 2012Q4

REPORT INFORMATION
  Report Type: 
  Country: US (occurrence: US)
  Receive Date: 20110429
  Receipt Date: 20120913
  Transmission Date: 20130627
  Serious: No
  Sender: FDA-Public Use
  Company Number: US-ASTRAZENECA-2010SE22451

PATIENT
  Age: 46 Year
  Sex: Female

DRUGS (1)
  1. NEXIUM [Suspect]
     Route: 048

REACTIONS (6)
  - Dyspepsia [Unknown]
  - Aphagia [Unknown]
  - Road traffic accident [Unknown]
  - Insomnia [Unknown]
  - Drug dose omission [Unknown]
  - Drug effect incomplete [Unknown]
